FAERS Safety Report 25015225 (Version 1)
Quarter: 2025Q1

REPORT INFORMATION
  Report Type: Spontaneous
  Country: CA (occurrence: CA)
  Receive Date: 20250226
  Receipt Date: 20250226
  Transmission Date: 20250409
  Serious: Yes (Hospitalization, Other)
  Sender: BRISTOL-MYERS SQUIBB COMPANY
  Company Number: CA-BRISTOL-MYERS SQUIBB COMPANY-2025-025765

PATIENT
  Age: 65 Year
  Sex: Female

DRUGS (28)
  1. APIXABAN [Suspect]
     Active Substance: APIXABAN
     Indication: Product used for unknown indication
  2. BREXPIPRAZOLE [Concomitant]
     Active Substance: BREXPIPRAZOLE
     Indication: Depression
  3. BUPROPION [Concomitant]
     Active Substance: BUPROPION
     Indication: Depression
  4. BUPROPION [Concomitant]
     Active Substance: BUPROPION
  5. BUPROPION [Concomitant]
     Active Substance: BUPROPION
  6. CANNABIS SATIVA FLOWERING TOP [Concomitant]
     Active Substance: CANNABIS SATIVA FLOWERING TOP
     Indication: Insomnia
  7. CLOMIPRAMINE [Concomitant]
     Active Substance: CLOMIPRAMINE
     Indication: Depression
  8. ESCITALOPRAM [Concomitant]
     Active Substance: ESCITALOPRAM OXALATE
     Indication: Depression
  9. FLUOXETINE HYDROCHLORIDE [Concomitant]
     Active Substance: FLUOXETINE HYDROCHLORIDE
     Indication: Depression
  10. FLUVOXAMINE [Concomitant]
     Active Substance: FLUVOXAMINE
     Indication: Depression
  11. GABAPENTIN [Concomitant]
     Active Substance: GABAPENTIN
     Indication: Depression
  12. LAMOTRIGINE [Concomitant]
     Active Substance: LAMOTRIGINE
     Indication: Product used for unknown indication
  13. LEMBOREXANT [Concomitant]
     Active Substance: LEMBOREXANT
     Indication: Depression
     Route: 048
  14. LEVOMEPROMAZINE [Concomitant]
     Active Substance: LEVOMEPROMAZINE
     Indication: Depression
  15. LORAZEPAM [Concomitant]
     Active Substance: LORAZEPAM
     Indication: Depression
  16. LURASIDONE HYDROCHLORIDE [Concomitant]
     Active Substance: LURASIDONE HYDROCHLORIDE
     Indication: Product used for unknown indication
  17. LURASIDONE HYDROCHLORIDE [Concomitant]
     Active Substance: LURASIDONE HYDROCHLORIDE
  18. MIRTAZAPINE [Concomitant]
     Active Substance: MIRTAZAPINE
     Indication: Depression
  19. OLANZAPINE [Concomitant]
     Active Substance: OLANZAPINE
     Indication: Depression
  20. PANTOPRAZOLE [Concomitant]
     Active Substance: PANTOPRAZOLE
     Indication: Product used for unknown indication
  21. PAROXETINE [Concomitant]
     Active Substance: PAROXETINE
     Indication: Depression
  22. PRAMIPEXOLE [Concomitant]
     Active Substance: PRAMIPEXOLE
     Indication: Product used for unknown indication
  23. QUETIAPINE FUMARATE [Concomitant]
     Active Substance: QUETIAPINE FUMARATE
     Indication: Depression
  24. RISPERIDONE [Concomitant]
     Active Substance: RISPERIDONE
     Indication: Depression
  25. VENLAFAXINE [Concomitant]
     Active Substance: VENLAFAXINE HYDROCHLORIDE
     Indication: Depression
  26. VORTIOXETINE [Concomitant]
     Active Substance: VORTIOXETINE
     Indication: Depression
  27. ZOLPIDEM [Concomitant]
     Active Substance: ZOLPIDEM TARTRATE
     Indication: Depression
  28. ZOPICLONE [Concomitant]
     Active Substance: ZOPICLONE
     Indication: Depression

REACTIONS (5)
  - Condition aggravated [Recovered/Resolved]
  - Drug ineffective [Unknown]
  - Suicidal ideation [Recovered/Resolved]
  - Suicide attempt [Recovered/Resolved]
  - Hospitalisation [Unknown]
